FAERS Safety Report 25091947 (Version 1)
Quarter: 2025Q1

REPORT INFORMATION
  Report Type: Report from Study
  Country: TR (occurrence: TR)
  Receive Date: 20250318
  Receipt Date: 20250318
  Transmission Date: 20250409
  Serious: Yes (Death)
  Sender: ABBVIE
  Company Number: TR-ABBVIE-6184462

PATIENT
  Sex: Female
  Weight: 51 kg

DRUGS (4)
  1. CARBIDOPA\LEVODOPA [Suspect]
     Active Substance: CARBIDOPA\LEVODOPA
     Indication: Parkinson^s disease
     Route: 050
     Dates: start: 20190207
  2. CARBIDOPA\LEVODOPA [Suspect]
     Active Substance: CARBIDOPA\LEVODOPA
  3. CITALOPRAM HYDROBROMIDE [Concomitant]
     Active Substance: CITALOPRAM HYDROBROMIDE
     Indication: Depression
     Dosage: FORM STRENGTH 20 MG
     Route: 048
     Dates: start: 2017
  4. Diltizem [Concomitant]
     Indication: Hypertension
     Route: 048
     Dates: start: 20190207

REACTIONS (1)
  - General physical health deterioration [Fatal]
